FAERS Safety Report 26206352 (Version 1)
Quarter: 2025Q4

REPORT INFORMATION
  Report Type: Spontaneous
  Country: US (occurrence: US)
  Receive Date: 20251229
  Receipt Date: 20251229
  Transmission Date: 20260118
  Serious: No
  Sender: MERCK SHARP & DOHME LLC
  Company Number: US-009507513-2363536

PATIENT
  Age: 81 Year
  Sex: Male

DRUGS (2)
  1. DAPTOMYCIN [Suspect]
     Active Substance: DAPTOMYCIN
     Indication: Endocarditis staphylococcal
  2. CEFTAROLINE [Concomitant]
     Active Substance: CEFTAROLINE
     Indication: Endocarditis staphylococcal

REACTIONS (1)
  - Product use in unapproved indication [Unknown]
